FAERS Safety Report 12517071 (Version 1)
Quarter: 2016Q2

REPORT INFORMATION
  Report Type: Spontaneous
  Country: DK (occurrence: DK)
  Receive Date: 20160630
  Receipt Date: 20160630
  Transmission Date: 20160815
  Serious: Yes (Other)
  Sender: FDA-Public Use
  Company Number: DK-PFIZER INC-2974843

PATIENT
  Age: 10 Year
  Sex: Male

DRUGS (7)
  1. MITOXANTRONE [Suspect]
     Active Substance: MITOXANTRONE HYDROCHLORIDE
     Indication: ACUTE MYELOID LEUKAEMIA
     Dosage: UNK UNK, CYCLIC 6 CHEMOTHERAPY COURSES WITH CUMULATIVE DOSES  OF 60 MG/M2
     Route: 042
  2. THIOGUANINE [Suspect]
     Active Substance: THIOGUANINE
     Indication: ACUTE MYELOID LEUKAEMIA
     Dosage: UNK UNK, CYCLIC 6 CHEMOTHERAPY COURSES WITH CUMULATIVE DOSES OF 800 MG/M2
     Route: 048
  3. GEMTUZUMAB OZOGAMICIN [Suspect]
     Active Substance: GEMTUZUMAB OZOGAMICIN
     Indication: ACUTE MYELOID LEUKAEMIA
     Dosage: 5 MG/M2, CYCLIC
  4. IDARUBICIN HCL [Suspect]
     Active Substance: IDARUBICIN HYDROCHLORIDE
     Indication: ACUTE MYELOID LEUKAEMIA
     Dosage: UNK UNK, CYCLIC 6 CHEMOTHERAPY COURSES WITH CUMULATIVE DOSES OF 36MG/M2
     Route: 042
  5. CYTARABINE. [Suspect]
     Active Substance: CYTARABINE
     Indication: ACUTE MYELOID LEUKAEMIA
     Dosage: UNK UNK, CYCLIC TOTAL OF 6 CHEMOTHERAPY COURSES WITH CUMULATIVE DOSES OF 49300 MG/M2
     Route: 042
  6. ETOPOSIDE. [Suspect]
     Active Substance: ETOPOSIDE
     Indication: ACUTE MYELOID LEUKAEMIA
     Dosage: UNK UNK, CYCLIC TOTAL OF 6 CHEMOTHERAPY COURSES WITH CUMULATIVE DOSES OF 1200 MG/M2
     Route: 042
  7. METHOTREXATE SODIUM. [Suspect]
     Active Substance: METHOTREXATE SODIUM
     Indication: ACUTE MYELOID LEUKAEMIA
     Dosage: 12 MG, CYCLIC (6 CHEMOTHERAPY COURSES WITH CUMULATIVE DOSES OF 6 X 12 MG)
     Route: 037

REACTIONS (2)
  - Myelodysplastic syndrome [Recovered/Resolved]
  - Second primary malignancy [Recovered/Resolved]
